FAERS Safety Report 6105348-0 (Version None)
Quarter: 2009Q1

REPORT INFORMATION
  Report Type: 
  Country: None (occurrence: None)
  Receive Date: 20090306
  Receipt Date: 20090303
  Transmission Date: 20090719
  Serious: Yes (Hospitalization, Other)
  Sender: FDA-Public Use
  Company Number: GB-BAYER-200910635BNE

PATIENT
  Age: 47 Year
  Sex: Female
  Weight: 57 kg

DRUGS (5)
  1. ASPIRIN [Suspect]
     Indication: ACUTE CORONARY SYNDROME
     Route: 048
     Dates: start: 20081121, end: 20081122
  2. CLOPIDOGREL [Suspect]
     Route: 048
     Dates: start: 20081121, end: 20081122
  3. AMITRIPTYLINE [Concomitant]
     Dosage: TOTAL DAILY DOSE: 20 MG
     Route: 048
     Dates: start: 19980101
  4. DICLOFENAC [Concomitant]
     Dosage: TOTAL DAILY DOSE: 150 MG
     Route: 048
     Dates: start: 19980101, end: 20081127
  5. OMEPRAZOLE [Concomitant]
     Dosage: TOTAL DAILY DOSE: 20 MG
     Route: 048

REACTIONS (1)
  - GASTROINTESTINAL HAEMORRHAGE [None]
